FAERS Safety Report 6114614-4 (Version None)
Quarter: 2009Q1

REPORT INFORMATION
  Report Type: 
  Country: None (occurrence: None)
  Receive Date: 20090313
  Receipt Date: 20090303
  Transmission Date: 20090719
  Serious: Yes (Hospitalization, Other)
  Sender: FDA-Public Use
  Company Number: US-BIOGENIDEC-2008BI011665

PATIENT
  Sex: Female
  Weight: 127 kg

DRUGS (21)
  1. TYSABRI [Suspect]
     Indication: MULTIPLE SCLEROSIS
     Route: 042
     Dates: start: 20071220, end: 20080306
  2. CHANTIX [Concomitant]
  3. ABILIFY [Concomitant]
  4. ADDERALL XR 20 [Concomitant]
  5. SYMBICORT [Concomitant]
  6. BACLOFEN [Concomitant]
  7. COMBIVENT [Concomitant]
  8. CYMBALTA [Concomitant]
  9. LEXAPRO [Concomitant]
  10. PROVIGIL [Concomitant]
  11. REQUIP [Concomitant]
  12. RESTORIL [Concomitant]
  13. ZONEGRAN [Concomitant]
  14. VICODIN [Concomitant]
  15. MOTRIN [Concomitant]
  16. NIACIN [Concomitant]
  17. IMITREX [Concomitant]
  18. CEPHALOSPORIN [Concomitant]
  19. VITAMIN B-12 [Concomitant]
  20. BENADRYL [Concomitant]
  21. METHYLPREDNISOLONE 4MG TAB [Concomitant]

REACTIONS (20)
  - CARDIAC ARREST [None]
  - CHEST PAIN [None]
  - COUGH [None]
  - CYSTITIS [None]
  - DEEP VEIN THROMBOSIS [None]
  - DERMATITIS ACNEIFORM [None]
  - ELECTROCARDIOGRAM QT PROLONGED [None]
  - EXTRASYSTOLES [None]
  - GENERALISED OEDEMA [None]
  - HYPOKALAEMIA [None]
  - IMMUNE SYSTEM DISORDER [None]
  - IRON DEFICIENCY [None]
  - LYMPHADENITIS [None]
  - MICROCYTIC ANAEMIA [None]
  - MUSCLE SPASMS [None]
  - OEDEMA PERIPHERAL [None]
  - PULMONARY EMBOLISM [None]
  - PYELONEPHRITIS [None]
  - RENAL FAILURE ACUTE [None]
  - SINUSITIS [None]
